FAERS Safety Report 10403065 (Version 1)
Quarter: 2014Q3

REPORT INFORMATION
  Report Type: Report from Study
  Country: US (occurrence: US)
  Receive Date: 20140822
  Receipt Date: 20140822
  Transmission Date: 20150326
  Serious: Yes (Hospitalization)
  Sender: FDA-Public Use
  Company Number: US-JNJFOC-20140818816

PATIENT
  Age: 18 Year
  Sex: Female
  Weight: 51.2 kg

DRUGS (10)
  1. PREVACID [Concomitant]
     Active Substance: LANSOPRAZOLE
     Route: 065
  2. REMICADE [Suspect]
     Active Substance: INFLIXIMAB
     Indication: CROHN^S DISEASE
     Route: 042
     Dates: start: 20100716, end: 20101021
  3. CHOLECALCIFEROL [Concomitant]
     Active Substance: CHOLECALCIFEROL
     Route: 065
  4. CALCIUM 500 + D [Concomitant]
     Active Substance: CALCIUM\VITAMIN D
     Route: 065
  5. BACTROBAN [Concomitant]
     Active Substance: MUPIROCIN\MUPIROCIN CALCIUM
     Route: 061
  6. CYANOCOBALAMIN. [Concomitant]
     Active Substance: CYANOCOBALAMIN
     Route: 065
  7. HUMIRA [Concomitant]
     Active Substance: ADALIMUMAB
     Indication: CROHN^S DISEASE
     Route: 065
     Dates: start: 20120507
  8. BUDESONIDE. [Concomitant]
     Active Substance: BUDESONIDE
     Indication: CROHN^S DISEASE
     Route: 065
  9. BENTYL [Concomitant]
     Active Substance: DICYCLOMINE HYDROCHLORIDE
     Route: 065
  10. MULTIVITAMINS [Concomitant]
     Active Substance: VITAMINS
     Route: 065

REACTIONS (1)
  - Fructose intolerance [Recovered/Resolved]

NARRATIVE: CASE EVENT DATE: 20140602
